FAERS Safety Report 5526546-0 (Version None)
Quarter: 2007Q4

REPORT INFORMATION
  Report Type: 
  Country: None (occurrence: None)
  Receive Date: 20071121
  Receipt Date: 20071121
  Transmission Date: 20080405
  Serious: Yes (Death)
  Sender: FDA-Public Use
  Company Number: None

PATIENT
  Sex: Male
  Weight: 90.7194 kg

DRUGS (1)
  1. PROHANCE [Suspect]
     Indication: SCAN WITH CONTRAST
     Dosage: 20 ML ONCE IV
     Route: 042
     Dates: start: 20070815, end: 20070815

REACTIONS (3)
  - ANAPHYLACTOID REACTION [None]
  - CONVULSION [None]
  - FALL [None]
